FAERS Safety Report 6375711-1 (Version None)
Quarter: 2009Q3

REPORT INFORMATION
  Report Type: 
  Country: None (occurrence: None)
  Receive Date: 20090924
  Receipt Date: 20090914
  Transmission Date: 20100115
  Serious: No
  Sender: FDA-Public Use
  Company Number: US-B.I. PHARMACEUTICALS,INC./RIDGEFIELD-2009-BP-10884BP

PATIENT
  Sex: Male

DRUGS (6)
  1. SPIRIVA [Suspect]
     Indication: DYSPNOEA
     Dosage: 18 MCG
     Route: 055
     Dates: start: 20040101
  2. GEMFIBROZIL [Concomitant]
     Indication: BLOOD TRIGLYCERIDES INCREASED
  3. DIOVAN [Concomitant]
     Indication: HYPERTENSION
  4. NORVASC [Concomitant]
     Indication: HYPERTENSION
  5. INDERAL LA [Concomitant]
     Indication: TREMOR
  6. STARLIX [Concomitant]
     Indication: DIABETES MELLITUS

REACTIONS (4)
  - BLOOD URINE PRESENT [None]
  - FINGER DEFORMITY [None]
  - URINE ANALYSIS ABNORMAL [None]
  - WHEEZING [None]
